FAERS Safety Report 9786208 (Version 1)
Quarter: 2013Q4

REPORT INFORMATION
  Report Type: Report from Study
  Country: FR (occurrence: FR)
  Receive Date: 20131227
  Receipt Date: 20131227
  Transmission Date: 20140711
  Serious: Yes (Death)
  Sender: FDA-Public Use
  Company Number: FR-BRISTOL-MYERS SQUIBB COMPANY-19946979

PATIENT
  Age: 53 Year
  Sex: Female
  Weight: 36 kg

DRUGS (3)
  1. ERBITUX SOLN FOR INF [Suspect]
     Indication: SQUAMOUS CELL CARCINOMA OF HEAD AND NECK
     Dosage: LAST INFUSION 11JUN13
     Route: 042
     Dates: start: 20130220
  2. CARBOPLATIN INJECTION [Suspect]
     Indication: SQUAMOUS CELL CARCINOMA OF HEAD AND NECK
     Dosage: 1DF= AUC 5?LAST INFUSION 11JUN13
     Route: 042
     Dates: start: 20130220
  3. FLUOROURACIL [Suspect]
     Indication: SQUAMOUS CELL CARCINOMA OF HEAD AND NECK
     Dosage: LAST INFUSION 11JUN13
     Route: 042
     Dates: start: 20130220

REACTIONS (1)
  - Death [Fatal]
